FAERS Safety Report 5101436-6 (Version None)
Quarter: 2006Q3

REPORT INFORMATION
  Report Type: 
  Country: None (occurrence: None)
  Receive Date: 20060911
  Receipt Date: 20060901
  Transmission Date: 20061208
  Serious: Yes (Disabling)
  Sender: FDA-Public Use
  Company Number: IT-GLAXOSMITHKLINE-B0437461A

PATIENT
  Age: 55 Year
  Sex: Female

DRUGS (3)
  1. AUGMENTIN [Suspect]
     Indication: HELICOBACTER GASTRITIS
     Dosage: 1G PER DAY
     Route: 048
     Dates: start: 20060401, end: 20060414
  2. MACLADIN [Suspect]
     Indication: HELICOBACTER GASTRITIS
     Dosage: 500MG PER DAY
     Route: 048
     Dates: start: 20060401, end: 20060414
  3. NEXIUM [Suspect]
     Indication: HELICOBACTER GASTRITIS
     Dosage: 40MG PER DAY
     Route: 048
     Dates: start: 20060401, end: 20060505

REACTIONS (2)
  - MYALGIA [None]
  - VISION BLURRED [None]
